FAERS Safety Report 20322394 (Version 1)
Quarter: 2022Q1

REPORT INFORMATION
  Report Type: Spontaneous
  Country: US (occurrence: US)
  Receive Date: 20220111
  Receipt Date: 20220111
  Transmission Date: 20220424
  Serious: Yes (Other)
  Sender: FDA-Public Use
  Company Number: US-ABBVIE-21K-163-4118892-00

PATIENT
  Age: 79 Year
  Sex: Female
  Weight: 49.940 kg

DRUGS (8)
  1. DUOPA [Suspect]
     Active Substance: CARBIDOPA\LEVODOPA
     Indication: Parkinson^s disease
     Route: 050
     Dates: start: 20200130
  2. DUOPA [Suspect]
     Active Substance: CARBIDOPA\LEVODOPA
  3. CARBIDOPA\LEVODOPA [Concomitant]
     Active Substance: CARBIDOPA\LEVODOPA
     Indication: Sleep disorder
  4. ROPINIROLE [Concomitant]
     Active Substance: ROPINIROLE
     Indication: Sleep disorder
  5. EUTHYROX [Concomitant]
     Active Substance: LEVOTHYROXINE SODIUM
     Indication: Hypothyroidism
  6. GABAPENTIN [Concomitant]
     Active Substance: GABAPENTIN
     Indication: Pain
  7. COVID-19 VACCINE [Concomitant]
     Indication: COVID-19 immunisation
     Dosage: UNKNOWN MANUFACTURER
     Route: 030
     Dates: start: 20210402, end: 20210402
  8. COVID-19 VACCINE [Concomitant]
     Dosage: UNKNOWN MANUFACTURER
     Route: 030
     Dates: start: 20210430, end: 20210430

REACTIONS (4)
  - Dysphagia [Recovering/Resolving]
  - Device issue [Not Recovered/Not Resolved]
  - Stoma site pain [Not Recovered/Not Resolved]
  - Device loosening [Unknown]

NARRATIVE: CASE EVENT DATE: 20210101
